FAERS Safety Report 4388633-2 (Version None)
Quarter: 2004Q2

REPORT INFORMATION
  Report Type: 
  Country: None (occurrence: None)
  Receive Date: 20040624
  Receipt Date: 20040608
  Transmission Date: 20050107
  Serious: Yes (Hospitalization)
  Sender: FDA-Public Use
  Company Number: 197213

PATIENT
  Age: 31 Year
  Sex: Female

DRUGS (10)
  1. AVONEX [Suspect]
     Indication: MULTIPLE SCLEROSIS
     Dosage: 30 MCG QW IM
     Route: 030
     Dates: start: 20000701, end: 20030901
  2. AVONEX [Suspect]
     Indication: MULTIPLE SCLEROSIS
     Dosage: 30 MCG QW IM
     Route: 030
     Dates: start: 20030901, end: 20040321
  3. AVONEX [Suspect]
     Indication: MULTIPLE SCLEROSIS
     Dosage: 30 MCG QW IM
     Route: 030
     Dates: start: 20040513
  4. TARKA [Concomitant]
  5. CELEBREX [Concomitant]
  6. LEXAPRO [Concomitant]
  7. NEURONTIN [Concomitant]
  8. PREVACID [Concomitant]
  9. PROVIGIL [Concomitant]
  10. CLONAZEPAM [Concomitant]

REACTIONS (2)
  - CHOLECYSTECTOMY [None]
  - CHOLELITHIASIS [None]
